FAERS Safety Report 5798781-8 (Version None)
Quarter: 2008Q2

REPORT INFORMATION
  Report Type: 
  Country: None (occurrence: None)
  Receive Date: 20080630
  Receipt Date: 20080616
  Transmission Date: 20081010
  Serious: Yes (Other)
  Sender: FDA-Public Use
  Company Number: B0526436A

PATIENT
  Age: 56 Year
  Sex: Female

DRUGS (3)
  1. LAPATINIB (FORMULATION UNKNOWN) (LAPATINIB) [Suspect]
     Indication: BREAST CANCER
     Dosage: 1250 MG / PER ORAL /
     Dates: start: 20070201
  2. CAPECITABINE (FORMULATION UNKNOWN) (CAPECITABINE) [Suspect]
     Indication: BREAST CANCER
     Dosage: 1000 MG/M2 / TWICE PER DAY /
     Dates: start: 20060101
  3. TRASTUZUMAB [Concomitant]

REACTIONS (3)
  - BALANCE DISORDER [None]
  - CEREBELLAR ATAXIA [None]
  - NEUROTOXICITY [None]
